FAERS Safety Report 5596539-6 (Version None)
Quarter: 2008Q1

REPORT INFORMATION
  Report Type: 
  Country: None (occurrence: None)
  Receive Date: 20080118
  Receipt Date: 20080109
  Transmission Date: 20080703
  Serious: Yes (Other)
  Sender: FDA-Public Use
  Company Number: JP-PFIZER INC-2007108580

PATIENT
  Age: 15 Year
  Sex: Female

DRUGS (5)
  1. GENOTROPIN [Suspect]
     Indication: HYPOPITUITARISM
     Route: 058
  2. CORTRIL [Concomitant]
     Route: 048
  3. THYRADIN-S [Concomitant]
     Route: 048
  4. DESMOPRESSIN ACETATE [Concomitant]
  5. ROCALTROL [Concomitant]

REACTIONS (1)
  - CONVULSION [None]
